FAERS Safety Report 4277256-1 (Version None)
Quarter: 2004Q1

REPORT INFORMATION
  Report Type: 
  Country: None (occurrence: None)
  Receive Date: 20040120
  Receipt Date: 20040106
  Transmission Date: 20041129
  Serious: Yes (Hospitalization)
  Sender: FDA-Public Use
  Company Number: KDL062377

PATIENT
  Age: 47 Year
  Sex: Female
  Weight: 70.7 kg

DRUGS (8)
  1. PROCRIT [Suspect]
     Indication: PRE-EXISTING DISEASE
     Dosage: 40000 U, WEEKLY, SC
     Route: 058
     Dates: start: 20020712, end: 20020823
  2. RIBAVIRIN [Concomitant]
  3. SERTRALINE HCL [Concomitant]
  4. OMEPRAZOLE [Concomitant]
  5. ACETAMINOPHEN [Concomitant]
  6. HYDRALAZINE HCL [Concomitant]
  7. LABETALOL HCL [Concomitant]
  8. DOCUSATE SODIUM [Concomitant]

REACTIONS (9)
  - ACTIVATED PARTIAL THROMBOPLASTIN TIME PROLONGED [None]
  - APHASIA [None]
  - BRADYCARDIA [None]
  - BRAIN OEDEMA [None]
  - CEREBRAL INFARCTION [None]
  - CEREBRAL VENOUS THROMBOSIS [None]
  - CONFUSIONAL STATE [None]
  - HEADACHE [None]
  - JUGULAR VEIN THROMBOSIS [None]
